FAERS Safety Report 15131648 (Version 2)
Quarter: 2018Q3

REPORT INFORMATION
  Report Type: Spontaneous
  Country: CA (occurrence: CA)
  Receive Date: 20180711
  Receipt Date: 20180830
  Transmission Date: 20181010
  Serious: Yes (Other)
  Sender: FDA-Public Use
  Company Number: PHHY2018CA042527

PATIENT
  Sex: Female

DRUGS (1)
  1. METFORMIN [Suspect]
     Active Substance: METFORMIN HYDROCHLORIDE
     Indication: DIABETES MELLITUS
     Dosage: 500 MG, UNK
     Route: 065

REACTIONS (17)
  - Anger [Unknown]
  - Chest pain [Unknown]
  - Confusional state [Unknown]
  - Product odour abnormal [Unknown]
  - Arthralgia [Unknown]
  - Asthenia [Unknown]
  - Fatigue [Unknown]
  - Renal pain [Unknown]
  - Peripheral swelling [Unknown]
  - Nausea [Unknown]
  - Abdominal pain upper [Unknown]
  - Blood glucose increased [Unknown]
  - Flatulence [Unknown]
  - Vision blurred [Unknown]
  - Depression [Unknown]
  - Eructation [Unknown]
  - Headache [Unknown]

NARRATIVE: CASE EVENT DATE: 201805
